FAERS Safety Report 9995462 (Version 1)
Quarter: 2014Q1

REPORT INFORMATION
  Report Type: Spontaneous
  Country: US (occurrence: None)
  Receive Date: 20140307
  Receipt Date: 20140307
  Transmission Date: 20141002
  Serious: Yes (Other)
  Sender: FDA-Public Use
  Company Number: None

PATIENT
  Age: 85 Year
  Sex: Female
  Weight: 68.04 kg

DRUGS (17)
  1. RANITIDINE [Suspect]
     Indication: DYSPEPSIA
     Route: 048
     Dates: start: 20130524, end: 20130526
  2. ZETIA [Concomitant]
  3. DOXYCYCLENE [Concomitant]
  4. COP/AMITRIP [Concomitant]
  5. DILTIAZEM [Concomitant]
  6. TRIAM/HCTZ [Concomitant]
  7. PANTRAPAZOLE [Concomitant]
  8. ASPIRIN [Concomitant]
  9. FOLIC ACID [Concomitant]
  10. CENTRUM SILVER [Concomitant]
  11. OSCAL CALCIUM + D3 [Concomitant]
  12. B6 [Concomitant]
  13. B12 [Concomitant]
  14. ZYRTEC [Concomitant]
  15. HYPOTEARS [Concomitant]
  16. STOOL SOFTENER [Concomitant]
  17. SENOKOT [Concomitant]

REACTIONS (2)
  - Rash [None]
  - Pruritus [None]
